FAERS Safety Report 7359935-2 (Version None)
Quarter: 2011Q1

REPORT INFORMATION
  Report Type: 
  Country: None (occurrence: None)
  Receive Date: 20110317
  Receipt Date: 20110304
  Transmission Date: 20110831
  Serious: Yes (Hospitalization)
  Sender: FDA-Public Use
  Company Number: US-BAYER-200922898NA

PATIENT
  Sex: Female
  Weight: 72 kg

DRUGS (13)
  1. MAGNEVIST [Suspect]
  2. LIDOCAINE [Suspect]
     Indication: X-RAY
  3. NORMAL SALINE [Suspect]
     Indication: JOINT INJURY
     Dosage: GIVEN WITH 1 CC OF MAGNEVIST
     Route: 014
     Dates: start: 20090429, end: 20090429
  4. NORMAL SALINE [Suspect]
  5. OPTIRAY 350 [Suspect]
     Indication: X-RAY LIMB
  6. MAGNEVIST [Suspect]
  7. OPTIRAY 350 [Suspect]
     Indication: JOINT INJURY
     Dosage: 5-10 ML
     Route: 014
     Dates: start: 20090429, end: 20090429
  8. MAGNEVIST [Suspect]
     Indication: ARTHROGRAM
     Dosage: 1 CC DILUTED WITH 10 CC'S OF 0.9% NORMAL SALINE
     Route: 014
     Dates: start: 20090429, end: 20090429
  9. LIDOCAINE [Suspect]
     Indication: JOINT INJURY
     Route: 014
     Dates: start: 20090429, end: 20090429
  10. PAROXETINE [Concomitant]
  11. OPTIRAY 350 [Suspect]
  12. NORMAL SALINE [Suspect]
     Indication: ARTHROGRAM
  13. CELEBREX [Concomitant]

REACTIONS (4)
  - PYREXIA [None]
  - SEPTIC ARTHRITIS STAPHYLOCOCCAL [None]
  - PAIN [None]
  - PURULENT DISCHARGE [None]
